FAERS Safety Report 6761777-3 (Version None)
Quarter: 2010Q2

REPORT INFORMATION
  Report Type: 
  Country: None (occurrence: None)
  Receive Date: 20100419
  Receipt Date: 20100408
  Transmission Date: 20101027
  Serious: Yes (Hospitalization, Other)
  Sender: FDA-Public Use
  Company Number: AECAN201000110

PATIENT
  Age: 36 Month
  Sex: Female
  Weight: 12.5 kg

DRUGS (5)
  1. GAMUNEX- ( IMMUNE GLOBULIN IV (HUMAN), (1) DATA BASE SYSTEM LIMITATION [Suspect]
     Indication: KAWASAKI'S DISEASE
     Dosage: 22.5 GM;TOTAL;IV;  25 GM;LQD;IV
     Route: 042
     Dates: start: 20100402, end: 20100403
  2. GAMUNEX- ( IMMUNE GLOBULIN IV (HUMAN), (1) DATA BASE SYSTEM LIMITATION [Suspect]
     Indication: LYMPHADENITIS
     Dosage: 22.5 GM;TOTAL;IV;  25 GM;LQD;IV
     Route: 042
     Dates: start: 20100402, end: 20100403
  3. GAMUNEX- ( IMMUNE GLOBULIN IV (HUMAN), (1) DATA BASE SYSTEM LIMITATION [Suspect]
     Indication: KAWASAKI'S DISEASE
     Dosage: 22.5 GM;TOTAL;IV;  25 GM;LQD;IV
     Route: 042
     Dates: start: 20100404, end: 20100404
  4. GAMUNEX- ( IMMUNE GLOBULIN IV (HUMAN), (1) DATA BASE SYSTEM LIMITATION [Suspect]
     Indication: LYMPHADENITIS
     Dosage: 22.5 GM;TOTAL;IV;  25 GM;LQD;IV
     Route: 042
     Dates: start: 20100404, end: 20100404
  5. GAMUNEX- ( IMMUNE GLOBULIN IV (HUMAN), (1) DATA BASE SYSTEM LIMITATION [Suspect]

REACTIONS (3)
  - COOMBS DIRECT TEST POSITIVE [None]
  - HAEMOLYTIC ANAEMIA [None]
  - TACHYCARDIA [None]
